FAERS Safety Report 11976203 (Version 1)
Quarter: 2016Q1

REPORT INFORMATION
  Report Type: Spontaneous
  Country: US (occurrence: US)
  Receive Date: 20160129
  Receipt Date: 20160129
  Transmission Date: 20160526
  Serious: No
  Sender: FDA-Public Use
  Company Number: US-BAYER-2016-012089

PATIENT
  Age: 67 Year
  Sex: Male
  Weight: 102.4 kg

DRUGS (3)
  1. DICYCLOMINE [Concomitant]
     Active Substance: DICYCLOMINE HYDROCHLORIDE
     Dosage: UNK
  2. MIRALAX [Suspect]
     Active Substance: POLYETHYLENE GLYCOL 3350
     Indication: IRRITABLE BOWEL SYNDROME
     Dosage: 17 G, QOD
     Route: 048
     Dates: start: 201601
  3. MIRALAX [Suspect]
     Active Substance: POLYETHYLENE GLYCOL 3350
     Indication: CONSTIPATION
     Dosage: 8.5 G, QOD
     Route: 048

REACTIONS (9)
  - Diarrhoea [None]
  - Abdominal distension [None]
  - Frequent bowel movements [None]
  - Dehydration [None]
  - Off label use [None]
  - Product use issue [None]
  - Feeling abnormal [None]
  - Flatulence [None]
  - Discomfort [None]
